FAERS Safety Report 19162485 (Version 1)
Quarter: 2021Q2

REPORT INFORMATION
  Report Type: Spontaneous
  Country: CN (occurrence: CN)
  Receive Date: 20210420
  Receipt Date: 20210420
  Transmission Date: 20210717
  Serious: Yes (Other)
  Sender: FDA-Public Use
  Company Number: CN-LUPIN PHARMACEUTICALS INC.-2021-04775

PATIENT
  Age: 22 Day
  Sex: Female
  Weight: 3.5 kg

DRUGS (11)
  1. VANCOMYCIN [Concomitant]
     Active Substance: VANCOMYCIN
     Indication: ANTI-INFECTIVE THERAPY
     Dosage: 0.04 GRAM, (10 MG/KG), IVGTT, EVERY 8 HOURS FROM DAYS 3 TO 8.
     Route: 065
     Dates: start: 20200305, end: 20200310
  2. LEVOFLOXACIN. [Suspect]
     Active Substance: LEVOFLOXACIN
     Indication: KLEBSIELLA INFECTION
  3. DOBUTAMINE [Concomitant]
     Active Substance: DOBUTAMINE HYDROCHLORIDE
     Indication: PRODUCT USED FOR UNKNOWN INDICATION
     Dosage: UNK
     Route: 065
  4. CEDILANIDE [DESLANOSIDE] [Concomitant]
     Indication: PRODUCT USED FOR UNKNOWN INDICATION
     Dosage: UNK
     Route: 065
  5. LEVETIRACETAM. [Concomitant]
     Active Substance: LEVETIRACETAM
     Indication: MUSCLE TWITCHING
     Dosage: 0.4 MILLILITER, BID, (10 MG/KG)
     Route: 048
     Dates: start: 20200318, end: 20200408
  6. CEFOPERAZONE SODIUM AND SULBACTAM SODIUM [Concomitant]
     Active Substance: CEFOPERAZONE SODIUM\SULBACTAM SODIUM
     Indication: PRODUCT USED FOR UNKNOWN INDICATION
     Dosage: UNK
     Route: 065
  7. AZTREONAM. [Concomitant]
     Active Substance: AZTREONAM
     Indication: KLEBSIELLA INFECTION
  8. DOPAMINE [Concomitant]
     Active Substance: DOPAMINE HYDROCHLORIDE
     Indication: PRODUCT USED FOR UNKNOWN INDICATION
     Dosage: UNK
     Route: 065
  9. AZTREONAM. [Concomitant]
     Active Substance: AZTREONAM
     Indication: MENINGITIS NEONATAL
     Dosage: 0.11 GRAM, (30 MG/KG), IVGTT, EVERY 8 HOURS
     Route: 065
     Dates: start: 20200318, end: 20200402
  10. LEVOFLOXACIN. [Suspect]
     Active Substance: LEVOFLOXACIN
     Indication: MENINGITIS NEONATAL
     Dosage: 0.04 GRAM, (10 MG/KG), 10 MG/KG), IVGTT, ONCE A DAY
     Route: 065
     Dates: start: 20200318, end: 20200402
  11. EPINEPHRINE. [Concomitant]
     Active Substance: EPINEPHRINE
     Indication: PRODUCT USED FOR UNKNOWN INDICATION
     Dosage: UNK
     Route: 065

REACTIONS (1)
  - Off label use [Unknown]
